FAERS Safety Report 12329026 (Version 2)
Quarter: 2016Q2

REPORT INFORMATION
  Report Type: Report from Study
  Country: BR (occurrence: BR)
  Receive Date: 20160503
  Receipt Date: 20160621
  Transmission Date: 20160815
  Serious: Yes (Other)
  Sender: FDA-Public Use
  Company Number: PHHY2015BR011521

PATIENT
  Sex: Male
  Weight: 18.5 kg

DRUGS (6)
  1. EXJADE [Suspect]
     Active Substance: DEFERASIROX
     Dosage: 350 MG, UNK
     Route: 065
  2. EXJADE [Suspect]
     Active Substance: DEFERASIROX
     Dosage: 35 MG/KG, QD (500 MG A DAY)
     Route: 065
  3. EXJADE [Suspect]
     Active Substance: DEFERASIROX
     Dosage: 35 MG/KG, QHS (500 MG A DAY)
     Route: 065
  4. EXJADE [Suspect]
     Active Substance: DEFERASIROX
     Indication: THALASSAEMIA BETA
     Dosage: 225 MG, UNK
     Route: 065
  5. EXJADE [Suspect]
     Active Substance: DEFERASIROX
     Dosage: 350 MG, UNK
     Route: 065
  6. EXJADE [Suspect]
     Active Substance: DEFERASIROX
     Dosage: 225 MG, UNK
     Route: 065
     Dates: start: 2014

REACTIONS (13)
  - Blood urea increased [Recovered/Resolved]
  - Stress [Unknown]
  - Mental disorder [Recovered/Resolved]
  - Discomfort [Recovered/Resolved]
  - Bite [Recovered/Resolved]
  - Pain [Unknown]
  - Haemoglobin decreased [Unknown]
  - Abdominal pain [Recovering/Resolving]
  - Immunodeficiency [Unknown]
  - Renal disorder [Recovering/Resolving]
  - Nausea [Recovered/Resolved]
  - Blood iron increased [Recovered/Resolved]
  - Fatigue [Unknown]
